FAERS Safety Report 22355893 (Version 4)
Quarter: 2024Q2

REPORT INFORMATION
  Report Type: Spontaneous
  Country: US (occurrence: US)
  Receive Date: 20230523
  Receipt Date: 20240627
  Transmission Date: 20240716
  Serious: Yes (Other)
  Sender: FDA-Public Use
  Company Number: US-PFIZER INC-PV202300089508

PATIENT
  Age: 50 Year
  Sex: Female

DRUGS (6)
  1. XELJANZ [Suspect]
     Active Substance: TOFACITINIB CITRATE
     Indication: Rheumatoid arthritis
     Dosage: 5 MG, 2X/DAY
     Route: 048
     Dates: start: 20230412
  2. XELJANZ [Suspect]
     Active Substance: TOFACITINIB CITRATE
     Dosage: 5 MG, 2X/DAY
     Route: 048
  3. TACROLIMUS SANDOZ [TACROLIMUS] [Concomitant]
     Dosage: UNK
  4. MYCOPHENOLIC ACID [Concomitant]
     Active Substance: MYCOPHENOLIC ACID
     Dosage: UNK
  5. TACROLIMUS [Concomitant]
     Active Substance: TACROLIMUS
     Dosage: UNK
  6. OZEMPIC [Concomitant]
     Active Substance: SEMAGLUTIDE
     Indication: Diabetes mellitus
     Dosage: UNK

REACTIONS (21)
  - Immunosuppression [Unknown]
  - Drug ineffective [Recovering/Resolving]
  - Sciatica [Unknown]
  - Confusional state [Unknown]
  - Headache [Unknown]
  - Fatigue [Unknown]
  - Haemoglobin decreased [Unknown]
  - Hypertension [Unknown]
  - Red blood cell sedimentation rate increased [Unknown]
  - Vision blurred [Unknown]
  - Ear discomfort [Unknown]
  - Chills [Unknown]
  - Hot flush [Unknown]
  - Condition aggravated [Unknown]
  - Skin discolouration [Not Recovered/Not Resolved]
  - Sensitivity to weather change [Unknown]
  - Arthralgia [Unknown]
  - Hunger [Unknown]
  - Joint stiffness [Not Recovered/Not Resolved]
  - Arthritis [Not Recovered/Not Resolved]
  - Arthralgia [Not Recovered/Not Resolved]
